FAERS Safety Report 10250048 (Version 1)
Quarter: 2014Q2

REPORT INFORMATION
  Report Type: Spontaneous
  Country: US (occurrence: US)
  Receive Date: 20140620
  Receipt Date: 20140620
  Transmission Date: 20141212
  Serious: No
  Sender: FDA-Public Use
  Company Number: US-BRISTOL-MYERS SQUIBB COMPANY-20606059

PATIENT
  Age: 69 Year
  Sex: Male

DRUGS (5)
  1. ELIQUIS [Suspect]
  2. MAGNESIUM [Concomitant]
  3. POTASSIUM [Concomitant]
  4. MULTIVITAMIN [Concomitant]
  5. LIPITOR [Concomitant]

REACTIONS (1)
  - Gastrointestinal pain [Unknown]
